FAERS Safety Report 5861418-3 (Version None)
Quarter: 2008Q3

REPORT INFORMATION
  Report Type: 
  Country: None (occurrence: None)
  Receive Date: 20080826
  Receipt Date: 20080818
  Transmission Date: 20090109
  Serious: Yes (Other)
  Sender: FDA-Public Use
  Company Number: 2008AL006272

PATIENT
  Age: 63 Year
  Sex: Female
  Weight: 134.7183 kg

DRUGS (21)
  1. DIGOXIN [Suspect]
     Indication: ATRIAL FIBRILLATION
     Dosage: 0.25MG, QOD, PO
     Route: 048
  2. VERAPAMIL [Concomitant]
  3. ALLOPURINOL [Concomitant]
  4. BUSPAR [Concomitant]
  5. CELEBREX [Concomitant]
  6. METFORMIN [Concomitant]
  7. WARFARIN SODIUM [Concomitant]
  8. PREVACID [Concomitant]
  9. DIOVAN [Concomitant]
  10. K-DUR [Concomitant]
  11. FUROSEMIDE [Concomitant]
  12. XANAX [Concomitant]
  13. ZYRTEC [Concomitant]
  14. SIMVASTATIN [Concomitant]
  15. CALCIUM [Concomitant]
  16. CENTRIUM [Concomitant]
  17. FOLIC ACID [Concomitant]
  18. ASCORBIC ACID [Concomitant]
  19. VITAMIN E [Concomitant]
  20. ASPIRIN [Concomitant]
  21. COUMADIN [Concomitant]

REACTIONS (6)
  - DIZZINESS [None]
  - HEART RATE ABNORMAL [None]
  - HYPOTENSION [None]
  - LOSS OF CONSCIOUSNESS [None]
  - MALAISE [None]
  - PALPITATIONS [None]
